FAERS Safety Report 10358127 (Version 2)
Quarter: 2014Q3

REPORT INFORMATION
  Report Type: Spontaneous
  Country: US (occurrence: US)
  Receive Date: 20140801
  Receipt Date: 20140801
  Transmission Date: 20150326
  Serious: No
  Sender: FDA-Public Use
  Company Number: US-009507513-2009-200084-NL

PATIENT
  Sex: Female
  Weight: 101.6 kg

DRUGS (1)
  1. NUVARING [Suspect]
     Active Substance: ETHINYL ESTRADIOL\ETONOGESTREL
     Indication: CONTRACEPTION
     Dosage: 1 DF, QM
     Route: 067
     Dates: start: 200610, end: 200702

REACTIONS (6)
  - Vulvovaginal pruritus [Unknown]
  - Dysuria [Unknown]
  - Rash pruritic [Unknown]
  - Drug hypersensitivity [Unknown]
  - Breast pain [Unknown]
  - Deep vein thrombosis [Unknown]

NARRATIVE: CASE EVENT DATE: 20070119
